APPROVED DRUG PRODUCT: CHLORDIAZEPOXIDE AND AMITRIPTYLINE HYDROCHLORIDE
Active Ingredient: AMITRIPTYLINE HYDROCHLORIDE; CHLORDIAZEPOXIDE
Strength: EQ 12.5MG BASE;5MG
Dosage Form/Route: TABLET;ORAL
Application: A072052 | Product #001
Applicant: HERITAGE PHARMA LABS INC
Approved: Dec 16, 1988 | RLD: No | RS: No | Type: DISCN